FAERS Safety Report 4716741-2 (Version None)
Quarter: 2005Q3

REPORT INFORMATION
  Report Type: 
  Country: None (occurrence: None)
  Receive Date: 20050714
  Receipt Date: 20050708
  Transmission Date: 20060218
  Serious: Yes (Hospitalization)
  Sender: FDA-Public Use
  Company Number: 200510851BWH

PATIENT
  Age: 49 Year
  Sex: Male

DRUGS (3)
  1. AVELOX [Suspect]
     Indication: BRONCHITIS
     Dosage: 400 MG QD ORAL
     Route: 048
     Dates: start: 20050317
  2. AVELOX [Suspect]
     Indication: PERTUSSIS
     Dosage: 400 MG QD ORAL
     Route: 048
     Dates: start: 20050317
  3. AVELOX [Suspect]
     Indication: PNEUMONIA
     Dosage: 400 MG QD ORAL
     Route: 048
     Dates: start: 20050317

REACTIONS (5)
  - NEUROPATHY PERIPHERAL [None]
  - PAIN IN EXTREMITY [None]
  - PERONEAL NERVE PALSY [None]
  - SJOGREN'S SYNDROME [None]
  - SYSTEMIC LUPUS ERYTHEMATOSUS [None]
